FAERS Safety Report 5062192-3 (Version None)
Quarter: 2006Q3

REPORT INFORMATION
  Report Type: 
  Country: None (occurrence: None)
  Receive Date: 20060726
  Receipt Date: 20060718
  Transmission Date: 20061208
  Serious: Yes (Other)
  Sender: FDA-Public Use
  Company Number: US-JNJFOC-20060704091

PATIENT
  Sex: Male
  Weight: 111.13 kg

DRUGS (3)
  1. DURAGESIC-100 [Suspect]
     Route: 062
  2. DURAGESIC-100 [Suspect]
     Indication: PAIN
     Route: 062
  3. HYDROCODONE [Concomitant]
     Indication: BREAKTHROUGH PAIN

REACTIONS (4)
  - CONSTIPATION [None]
  - DRUG WITHDRAWAL SYNDROME [None]
  - NEPHROLITHIASIS [None]
  - WEIGHT DECREASED [None]
